FAERS Safety Report 4358575-7 (Version None)
Quarter: 2004Q2

REPORT INFORMATION
  Report Type: 
  Country: None (occurrence: None)
  Receive Date: 20040514
  Receipt Date: 20020424
  Transmission Date: 20050107
  Serious: Yes (Hospitalization)
  Sender: FDA-Public Use
  Company Number: US-MERCK-0204USA02770

PATIENT
  Age: 72 Year
  Sex: Female

DRUGS (2)
  1. LITHIUM CARBONATE [Suspect]
     Route: 048
  2. VIOXX [Suspect]
     Route: 048

REACTIONS (9)
  - ASTERIXIS [None]
  - ASTHENIA [None]
  - ATAXIA [None]
  - DEHYDRATION [None]
  - DIZZINESS [None]
  - DRUG INTERACTION [None]
  - DRUG LEVEL INCREASED [None]
  - NAUSEA [None]
  - NYSTAGMUS [None]
